FAERS Safety Report 9386224 (Version 3)
Quarter: 2014Q4

REPORT INFORMATION
  Report Type: Report from Study
  Country: JP (occurrence: JP)
  Receive Date: 20130708
  Receipt Date: 20141020
  Transmission Date: 20150529
  Serious: Yes (Hospitalization)
  Sender: FDA-Public Use
  Company Number: JP-ROCHE-1245240

PATIENT
  Age: 45 Year
  Sex: Male

DRUGS (14)
  1. FERROUS FUMARATE [Concomitant]
     Active Substance: FERROUS FUMARATE
     Route: 048
     Dates: start: 20130807, end: 20131129
  2. MICARDIS [Concomitant]
     Active Substance: TELMISARTAN
     Route: 048
     Dates: end: 20131129
  3. FERROUS FUMARATE [Concomitant]
     Active Substance: FERROUS FUMARATE
     Dosage: REPORTED AS FERRUM
     Route: 048
     Dates: start: 20130123, end: 20130529
  4. METHOXY POLYETHYLENE GLYCOL-EPOETIN BETA [Suspect]
     Active Substance: PEGZEREPOETIN ALFA
     Indication: NEPHROGENIC ANAEMIA
     Route: 058
     Dates: start: 20130403, end: 20130508
  5. ACECOL [Concomitant]
     Active Substance: TEMOCAPRIL HYDROCHLORIDE
     Route: 048
     Dates: end: 20131129
  6. EPADEL [Concomitant]
     Active Substance: ICOSAPENT
     Route: 048
     Dates: end: 20131129
  7. FEBURIC [Concomitant]
     Active Substance: FEBUXOSTAT
     Route: 048
     Dates: end: 20131129
  8. METHOXY POLYETHYLENE GLYCOL-EPOETIN BETA [Suspect]
     Active Substance: PEGZEREPOETIN ALFA
     Indication: NEPHROGENIC ANAEMIA
     Route: 058
     Dates: start: 20121219, end: 20130227
  9. METHOXY POLYETHYLENE GLYCOL-EPOETIN BETA [Suspect]
     Active Substance: PEGZEREPOETIN ALFA
     Indication: NEPHROGENIC ANAEMIA
     Route: 058
     Dates: start: 20130612, end: 20130612
  10. ARTIST [Concomitant]
     Active Substance: CARVEDILOL
     Route: 048
  11. METHOXY POLYETHYLENE GLYCOL-EPOETIN BETA [Suspect]
     Active Substance: PEGZEREPOETIN ALFA
     Dosage: MOST RECENT DOSE ON 20/NOV/2013
     Route: 058
     Dates: start: 20130710
  12. ADALAT [Concomitant]
     Active Substance: NIFEDIPINE
     Route: 048
  13. ZETIA [Concomitant]
     Active Substance: EZETIMIBE
     Route: 048
  14. SEIBULE [Concomitant]
     Active Substance: MIGLITOL
     Indication: DIABETIC NEPHROPATHY
     Route: 048

REACTIONS (5)
  - Renal failure [Recovered/Resolved]
  - Hypertension [Unknown]
  - Infection [Unknown]
  - Bronchitis [Recovered/Resolved]
  - Pyrexia [Recovered/Resolved]

NARRATIVE: CASE EVENT DATE: 20130527
